FAERS Safety Report 24089640 (Version 1)
Quarter: 2024Q3

REPORT INFORMATION
  Report Type: Spontaneous
  Country: ES (occurrence: ES)
  Receive Date: 20240715
  Receipt Date: 20240715
  Transmission Date: 20241016
  Serious: Yes (Other)
  Sender: BOEHRINGER INGELHEIM
  Company Number: None

PATIENT
  Age: 64 Year
  Sex: Male
  Weight: 69 kg

DRUGS (3)
  1. JARDIANCE [Suspect]
     Active Substance: EMPAGLIFLOZIN
     Indication: Diabetes mellitus
     Route: 048
     Dates: start: 20210615, end: 20220714
  2. DAPAGLIFLOZIN PROPANEDIOL\METFORMIN HYDROCHLORIDE [Suspect]
     Active Substance: DAPAGLIFLOZIN PROPANEDIOL\METFORMIN HYDROCHLORIDE
     Indication: Diabetes mellitus
     Dosage: 5 MG/1.000 MG
     Route: 048
     Dates: start: 20230327, end: 20230425
  3. VELMETIA 50 MG/1000 MG COMPRIMIDOS RECUBIERTOS CON PELICULA, 56 compri [Concomitant]
     Indication: Diabetes mellitus
     Dosage: 50 MG/1000 MG
     Route: 048
     Dates: start: 2016, end: 2023

REACTIONS (3)
  - Candida infection [Recovered/Resolved]
  - Balanitis candida [Recovered/Resolved]
  - Acquired phimosis [Recovered/Resolved]

NARRATIVE: CASE EVENT DATE: 20210601
